FAERS Safety Report 7404116-7 (Version None)
Quarter: 2011Q2

REPORT INFORMATION
  Report Type: 
  Country: None (occurrence: None)
  Receive Date: 20110408
  Receipt Date: 20110325
  Transmission Date: 20111010
  Serious: Yes (Other)
  Sender: FDA-Public Use
  Company Number: CA-JNJFOC-20110311964

PATIENT
  Sex: Male
  Weight: 69 kg

DRUGS (2)
  1. REMICADE [Suspect]
     Indication: RETINOPATHY
     Route: 042
  2. SOLU-CORTEF [Concomitant]
     Indication: PREMEDICATION
     Dosage: PRIOR TO INFUSION
     Route: 065

REACTIONS (5)
  - OFF LABEL USE [None]
  - CHEST DISCOMFORT [None]
  - BLOOD PRESSURE DECREASED [None]
  - BLOOD GLUCOSE DECREASED [None]
  - INFUSION RELATED REACTION [None]
